FAERS Safety Report 9814782 (Version 3)
Quarter: 2014Q3

REPORT INFORMATION
  Report Type: Spontaneous
  Country: US (occurrence: US)
  Receive Date: 20140113
  Receipt Date: 20140902
  Transmission Date: 20150326
  Serious: No
  Sender: FDA-Public Use
  Company Number: US-009507513-1401USA004951

PATIENT
  Sex: Female
  Weight: 110.2 kg

DRUGS (1)
  1. NUVARING [Suspect]
     Active Substance: ETHINYL ESTRADIOL\ETONOGESTREL
     Indication: CONTRACEPTION
     Dosage: UNK
     Route: 067
     Dates: start: 20120612

REACTIONS (6)
  - Papilloma viral infection [Unknown]
  - Deep vein thrombosis [Recovered/Resolved]
  - Depression [Unknown]
  - Amenorrhoea [Unknown]
  - Anogenital warts [Unknown]
  - Oedema [Unknown]

NARRATIVE: CASE EVENT DATE: 20120831
